FAERS Safety Report 5557154-3 (Version None)
Quarter: 2007Q4

REPORT INFORMATION
  Report Type: 
  Country: None (occurrence: None)
  Receive Date: 20071214
  Receipt Date: 20071206
  Transmission Date: 20080405
  Serious: Yes (Hospitalization)
  Sender: FDA-Public Use
  Company Number: DE-JNJFOC-20071201981

PATIENT
  Sex: Female

DRUGS (1)
  1. IMODIUM [Suspect]
     Indication: DRUG USE FOR UNKNOWN INDICATION
     Dosage: DOSE UNKNOWN, 3 TIMES A DAY
     Route: 048

REACTIONS (3)
  - RASH [None]
  - SWELLING [None]
  - URTICARIA [None]
